FAERS Safety Report 6988390-7 (Version None)
Quarter: 2010Q3

REPORT INFORMATION
  Report Type: 
  Country: None (occurrence: None)
  Receive Date: 20100830
  Receipt Date: 20100603
  Transmission Date: 20110219
  Serious: No
  Sender: FDA-Public Use
  Company Number: 2010070567

PATIENT
  Age: 69 Year
  Sex: Male
  Weight: 104.3 kg

DRUGS (4)
  1. TOVIAZ [Suspect]
     Indication: BLADDER DISORDER
     Dosage: UNK, 1X/DAY, ORAL
     Route: 048
     Dates: start: 20100501
  2. TOVIAZ [Suspect]
     Indication: PROSTATECTOMY
     Dosage: UNK, 1X/DAY, ORAL
     Route: 048
     Dates: start: 20100501
  3. HUMIRA [Concomitant]
  4. ALLOPURINOL [Concomitant]

REACTIONS (3)
  - DRUG INEFFECTIVE [None]
  - DRY MOUTH [None]
  - INCORRECT DOSE ADMINISTERED [None]
